FAERS Safety Report 15042140 (Version 2)
Quarter: 2018Q2

REPORT INFORMATION
  Report Type: Spontaneous
  Country: US (occurrence: US)
  Receive Date: 20180621
  Receipt Date: 20180622
  Transmission Date: 20180711
  Serious: No
  Sender: FDA-Public Use
  Company Number: US-PFIZER INC-2018250638

PATIENT
  Age: 71 Year
  Sex: Female
  Weight: 92.97 kg

DRUGS (3)
  1. FASLODEX [Concomitant]
     Active Substance: FULVESTRANT
     Indication: BREAST CANCER METASTATIC
     Dosage: 50 MG, MONTHLY
     Route: 030
     Dates: start: 2016
  2. FEMARA [Concomitant]
     Active Substance: LETROZOLE
     Dosage: UNK
  3. IBRANCE [Suspect]
     Active Substance: PALBOCICLIB
     Indication: BREAST CANCER
     Dosage: 125 MG, CYCLIC (DAILY FOR 21 DAYS ON, 7 OFF)
     Route: 048
     Dates: start: 2015

REACTIONS (7)
  - Urticaria [Recovering/Resolving]
  - Hypersensitivity [Unknown]
  - Swelling [Unknown]
  - Pruritus [Recovering/Resolving]
  - Erythema [Unknown]
  - Blister [Recovering/Resolving]
  - Mass [Unknown]

NARRATIVE: CASE EVENT DATE: 2018
